FAERS Safety Report 7676948-1 (Version None)
Quarter: 2011Q3

REPORT INFORMATION
  Report Type: 
  Country: None (occurrence: None)
  Receive Date: 20110811
  Receipt Date: 20110809
  Transmission Date: 20111222
  Serious: Yes (Death, Hospitalization)
  Sender: FDA-Public Use
  Company Number: PHHY2010US52037

PATIENT
  Sex: Male

DRUGS (2)
  1. EXJADE [Suspect]
     Dosage: 1500 MG, DAILY
     Route: 048
     Dates: start: 20110215
  2. EXJADE [Suspect]
     Indication: LYMPHOPROLIFERATIVE DISORDER
     Dosage: 2500 MG, DAILY
     Route: 048
     Dates: start: 20100127

REACTIONS (2)
  - CARDIAC DISORDER [None]
  - DEATH [None]
